FAERS Safety Report 20457438 (Version 1)
Quarter: 2022Q1

REPORT INFORMATION
  Report Type: Spontaneous
  Country: AR (occurrence: AR)
  Receive Date: 20220210
  Receipt Date: 20220210
  Transmission Date: 20220423
  Serious: Yes (Other)
  Sender: FDA-Public Use
  Company Number: AR-PFIZER INC-202200174983

PATIENT
  Age: 74 Year
  Sex: Female

DRUGS (1)
  1. ENBREL [Suspect]
     Active Substance: ETANERCEPT
     Indication: Product used for unknown indication
     Dosage: UNK
     Route: 065

REACTIONS (15)
  - Near death experience [Unknown]
  - Deafness [Unknown]
  - Urinary retention [Unknown]
  - Malaise [Unknown]
  - Ear pain [Unknown]
  - Sensory disturbance [Unknown]
  - Colitis [Unknown]
  - Vomiting [Unknown]
  - Abdominal pain upper [Unknown]
  - Dry throat [Unknown]
  - Constipation [Unknown]
  - Feeding disorder [Unknown]
  - Gait disturbance [Unknown]
  - Headache [Unknown]
  - Decreased appetite [Unknown]
